FAERS Safety Report 16375720 (Version 1)
Quarter: 2019Q2

REPORT INFORMATION
  Report Type: Spontaneous
  Country: IN (occurrence: IN)
  Receive Date: 20190531
  Receipt Date: 20190531
  Transmission Date: 20190711
  Serious: Yes (Other)
  Sender: FDA-Public Use
  Company Number: IN-EMCURE PHARMACEUTICALS LTD-2019-EPL-0246

PATIENT
  Age: 5 Month
  Sex: Female
  Weight: 5 kg

DRUGS (10)
  1. NITROGLYCERINE [Concomitant]
     Active Substance: NITROGLYCERIN
     Dosage: 0.5 ?G/KG/MIN
  2. NORADRENALINE                      /00127501/ [Concomitant]
     Active Substance: NOREPINEPHRINE
     Dosage: 0.1 ?G/KG/MIN
  3. COLISTIMETHATE SODIUM. [Suspect]
     Active Substance: COLISTIMETHATE SODIUM
     Indication: PNEUMONIA KLEBSIELLA
     Dosage: 30000 UNITS/KG/8 HRLY FROM POD 12
  4. PHENOXYBENZAMINE [Concomitant]
     Active Substance: PHENOXYBENZAMINE
     Dosage: 0.5 MICROGRAM/KILOGRAM, TID
  5. IMIPENEM [Concomitant]
     Active Substance: IMIPENEM
     Indication: KLEBSIELLA INFECTION
     Dosage: 20 MILLIGRAM/KG/8 HRLY FROM POD 12
  6. ADRENALINE                         /00003901/ [Concomitant]
     Active Substance: EPINEPHRINE
     Dosage: 0.05 ?G/KG/MIN
     Route: 042
  7. PIPERACILIN/TAZOBACTAM [Concomitant]
     Active Substance: PIPERACILLIN SODIUM\TAZOBACTAM SODIUM
     Dosage: 50 MILLIGRAM/KILOGRAM, QID
     Route: 042
  8. AMIKACIN. [Concomitant]
     Active Substance: AMIKACIN
     Dosage: 15 MICROGRAM/KILOGRAM, QD
     Route: 042
  9. VANCOMYCIN [Concomitant]
     Active Substance: VANCOMYCIN
     Dosage: 10 MILLIGRAM/KILOGRAM, TID
     Route: 042
  10. DOBUTAMINE [Concomitant]
     Active Substance: DOBUTAMINE\DOBUTAMINE HYDROCHLORIDE
     Dosage: 5MCG/KG/MIN
     Route: 042

REACTIONS (1)
  - Drug resistance [Unknown]
